FAERS Safety Report 9022266 (Version 3)
Quarter: 2013Q1

REPORT INFORMATION
  Report Type: Spontaneous
  Country: US (occurrence: US)
  Receive Date: 20130118
  Receipt Date: 20130307
  Transmission Date: 20140127
  Serious: No
  Sender: FDA-Public Use
  Company Number: PHEH2013US001551

PATIENT
  Age: 50 None
  Sex: Female

DRUGS (7)
  1. TASIGNA [Suspect]
     Indication: CHRONIC MYELOID LEUKAEMIA
     Dosage: 200 MG, BID
     Route: 048
     Dates: end: 201212
  2. TASIGNA [Suspect]
     Dosage: 200 MG, BID
     Route: 048
     Dates: start: 201301
  3. ANTIHYPERTENSIVE DRUGS [Concomitant]
     Indication: HYPERTENSION
  4. LANTUS [Concomitant]
     Dosage: 36 U, AT NIGHT
  5. METFORMIN [Concomitant]
     Dosage: TWICE DAILY
  6. LYRICA [Concomitant]
     Dosage: TWICE DAILY
  7. VIT D [Concomitant]
     Dosage: ONCE DAILY

REACTIONS (4)
  - Vulvovaginal pruritus [Unknown]
  - Eye swelling [Not Recovered/Not Resolved]
  - Alopecia [Unknown]
  - Weight increased [Not Recovered/Not Resolved]
